FAERS Safety Report 20420540 (Version 1)
Quarter: 2022Q1

REPORT INFORMATION
  Report Type: Spontaneous
  Country: US (occurrence: None)
  Receive Date: 20220202
  Receipt Date: 20220202
  Transmission Date: 20220423
  Serious: No
  Sender: FDA-Public Use
  Company Number: None

PATIENT
  Age: 67 Year
  Sex: Female
  Weight: 76.5 kg

DRUGS (4)
  1. MIRVASO [Suspect]
     Active Substance: BRIMONIDINE TARTRATE
     Indication: Rosacea
     Dosage: OTHER QUANTITY : 1 PEA SIZED PUMP;?
     Route: 061
     Dates: start: 20220128, end: 20220201
  2. LISINOPRIL [Concomitant]
     Active Substance: LISINOPRIL
  3. CRESTOR [Concomitant]
     Active Substance: ROSUVASTATIN CALCIUM
  4. OCUVITE [Concomitant]
     Active Substance: VITAMINS

REACTIONS (2)
  - Rosacea [None]
  - Insurance issue [None]

NARRATIVE: CASE EVENT DATE: 20220202
